FAERS Safety Report 21062029 (Version 7)
Quarter: 2022Q4

REPORT INFORMATION
  Report Type: Spontaneous
  Country: CA (occurrence: CA)
  Receive Date: 20220710
  Receipt Date: 20221201
  Transmission Date: 20230113
  Serious: Yes (Other)
  Sender: FDA-Public Use
  Company Number: CA-CELLTRION INC.-2021CA014248

PATIENT

DRUGS (17)
  1. INFLECTRA [Suspect]
     Active Substance: INFLIXIMAB-DYYB
     Indication: Colitis ulcerative
     Dosage: 337.5 MG, 0,2,6 WEEKS THEN EVERY 8 WEEKS
     Route: 042
     Dates: start: 20210511, end: 20211208
  2. INFLECTRA [Suspect]
     Active Substance: INFLIXIMAB-DYYB
     Dosage: 337.5 MG, 0,2,6 WEEKS THEN EVERY 8 WEEKS
     Route: 042
     Dates: start: 20210528
  3. INFLECTRA [Suspect]
     Active Substance: INFLIXIMAB-DYYB
     Dosage: 337.5 MG, 0,2,6 WEEKS THEN EVERY 8 WEEKS
     Route: 042
     Dates: start: 20210623
  4. INFLECTRA [Suspect]
     Active Substance: INFLIXIMAB-DYYB
     Dosage: 337.5 MG, 0,2,6 WEEKS THEN EVERY 8 WEEKS
     Route: 042
     Dates: start: 20210818
  5. INFLECTRA [Suspect]
     Active Substance: INFLIXIMAB-DYYB
     Dosage: 337.5 MG, 0,2,6 WEEKS THEN EVERY 8 WEEKS
     Route: 042
     Dates: start: 20211013
  6. INFLECTRA [Suspect]
     Active Substance: INFLIXIMAB-DYYB
     Dosage: 337.5 MG AT 0,2,6 WEEKS THEN EVERY 8 WEEKS
     Route: 042
     Dates: start: 20211208
  7. INFLECTRA [Suspect]
     Active Substance: INFLIXIMAB-DYYB
     Dosage: 337.5 MG EVERY 4 WEEKS
     Route: 042
     Dates: start: 20220204
  8. INFLECTRA [Suspect]
     Active Substance: INFLIXIMAB-DYYB
     Dosage: 337.5 MG , EVERY 4 WEEKS
     Route: 042
     Dates: start: 20220204, end: 20220926
  9. INFLECTRA [Suspect]
     Active Substance: INFLIXIMAB-DYYB
     Dosage: 337.5 MG EVERY 4 WEEKS
     Route: 042
     Dates: start: 20220304
  10. INFLECTRA [Suspect]
     Active Substance: INFLIXIMAB-DYYB
     Dosage: 337.5 MG EVERY 4 WEEKS
     Route: 042
     Dates: start: 20220407
  11. INFLECTRA [Suspect]
     Active Substance: INFLIXIMAB-DYYB
     Dosage: 337.5 MG, EVERY 4 WEEKS
     Route: 042
     Dates: start: 20220505
  12. INFLECTRA [Suspect]
     Active Substance: INFLIXIMAB-DYYB
     Dosage: 337.5 MG, EVERY 4 WEEKS
     Route: 042
     Dates: start: 20220602
  13. INFLECTRA [Suspect]
     Active Substance: INFLIXIMAB-DYYB
     Dosage: 337.5 MG, EVERY 4 WEEKS
     Route: 042
     Dates: start: 20220630
  14. INFLECTRA [Suspect]
     Active Substance: INFLIXIMAB-DYYB
     Dosage: 337.5 MG, EVERY 4 WEEKS
     Route: 042
     Dates: start: 20220728
  15. INFLECTRA [Suspect]
     Active Substance: INFLIXIMAB-DYYB
     Dosage: 337.5 MG, EVERY 4 WEEKS
     Route: 042
     Dates: start: 20220825
  16. INFLECTRA [Suspect]
     Active Substance: INFLIXIMAB-DYYB
     Dosage: 337.5 MG, EVERY 4 WEEKS
     Route: 042
     Dates: start: 20220926
  17. PAROXETINE [Concomitant]
     Active Substance: PAROXETINE
     Dosage: 1 DF
     Route: 065

REACTIONS (11)
  - Haematochezia [Recovered/Resolved]
  - Condition aggravated [Not Recovered/Not Resolved]
  - Drug ineffective [Unknown]
  - Dry throat [Recovering/Resolving]
  - Nausea [Recovering/Resolving]
  - Pyrexia [Recovered/Resolved]
  - Ear infection [Unknown]
  - Off label use [Unknown]
  - Off label use [Unknown]
  - Product dose omission issue [Unknown]
  - Inappropriate schedule of product administration [Unknown]

NARRATIVE: CASE EVENT DATE: 20211208
